FAERS Safety Report 8565398-1 (Version None)
Quarter: 2012Q3

REPORT INFORMATION
  Report Type: 
  Country: None (occurrence: None)
  Receive Date: 20120803
  Receipt Date: 20120726
  Transmission Date: 20120928
  Serious: Yes (Other)
  Sender: FDA-Public Use
  Company Number: CA-ROCHE-751749

PATIENT
  Sex: Female
  Weight: 111.23 kg

DRUGS (17)
  1. CARDIZEM [Concomitant]
     Dosage: DOSAGE INCREASED
     Route: 048
  2. CARDIZEM [Concomitant]
     Route: 048
  3. CALCIUM [Concomitant]
  4. ABATACEPT [Suspect]
     Indication: PRODUCT USED FOR UNKNOWN INDICATION
     Route: 042
     Dates: start: 20100501, end: 20101101
  5. CARDIZEM [Concomitant]
     Indication: HYPERTENSION
     Route: 048
  6. DICLOFENAC SODIUM [Concomitant]
     Indication: RHEUMATOID ARTHRITIS
     Route: 048
  7. AVAPRO [Concomitant]
     Indication: HYPERTENSION
     Route: 048
  8. ARAVA [Concomitant]
  9. PANTOPRAZOLE SODIUM [Concomitant]
     Indication: PROPHYLAXIS AGAINST GASTROINTESTINAL ULCER
     Route: 048
  10. ESCITALOPRAM [Concomitant]
  11. ACTEMRA [Suspect]
     Indication: RHEUMATOID ARTHRITIS
     Route: 042
  12. ACTEMRA [Suspect]
     Route: 042
     Dates: start: 20110207, end: 20110207
  13. ACTEMRA [Suspect]
  14. ACTEMRA [Suspect]
     Route: 042
  15. CLONAZEPAM [Concomitant]
     Indication: RESTLESS LEGS SYNDROME
  16. LOVAZA [Concomitant]
     Dosage: DRUG REPORTED: OMEGA 3
  17. VITAMIN D [Concomitant]

REACTIONS (5)
  - NASOPHARYNGITIS [None]
  - PAROTID GLAND ENLARGEMENT [None]
  - PSORIASIS [None]
  - BLOOD PRESSURE INCREASED [None]
  - NASAL CONGESTION [None]
